FAERS Safety Report 4737303-7 (Version None)
Quarter: 2005Q3

REPORT INFORMATION
  Report Type: 
  Country: None (occurrence: None)
  Receive Date: 20050808
  Receipt Date: 20050803
  Transmission Date: 20060218
  Serious: Yes (Death, Hospitalization)
  Sender: FDA-Public Use
  Company Number: FR-MERCK-0508FRA00005

PATIENT
  Age: 72 Year
  Sex: Female

DRUGS (9)
  1. PRIMAXIN [Suspect]
     Route: 042
     Dates: start: 20050707, end: 20050712
  2. FLUCONAZOLE [Suspect]
     Route: 042
     Dates: start: 20050707, end: 20050713
  3. VANCOMYCIN [Suspect]
     Route: 042
     Dates: start: 20050707, end: 20050711
  4. ENOXAPARIN SODIUM [Suspect]
     Route: 042
     Dates: end: 20050710
  5. RANITIDINE HYDROCHLORIDE [Suspect]
     Route: 051
     Dates: start: 20050531
  6. OCTREOTIDE [Suspect]
     Route: 058
  7. INSULIN, NEUTRAL [Concomitant]
     Route: 065
     Dates: start: 20050601
  8. HYDROCORTISONE [Concomitant]
     Route: 065
     Dates: end: 20050713
  9. METHYLPREDNISOLONE SODIUM SUCCINATE [Concomitant]
     Route: 065
     Dates: start: 20050714

REACTIONS (3)
  - ANAEMIA [None]
  - MULTI-ORGAN FAILURE [None]
  - THROMBOCYTOPENIA [None]
